FAERS Safety Report 8104410-0 (Version None)
Quarter: 2012Q1

REPORT INFORMATION
  Report Type: 
  Country: None (occurrence: None)
  Receive Date: 20120130
  Receipt Date: 20120130
  Transmission Date: 20120608
  Serious: Yes (Hospitalization, Other)
  Sender: FDA-Public Use
  Company Number: JP-JNJFOC-20091003552

PATIENT
  Sex: Female
  Weight: 59 kg

DRUGS (33)
  1. CHINESE MEDICATION [Concomitant]
     Indication: FLATULENCE
     Route: 048
     Dates: start: 20090824
  2. DECADRON [Concomitant]
     Route: 042
     Dates: start: 20090827, end: 20090827
  3. DOXORUBICIN HCL [Suspect]
     Route: 042
     Dates: start: 20100122, end: 20100122
  4. DOXORUBICIN HCL [Suspect]
     Route: 042
     Dates: start: 20090827, end: 20090827
  5. DOXORUBICIN HCL [Suspect]
     Route: 042
     Dates: start: 20090713, end: 20090713
  6. AZUNOL [Concomitant]
     Indication: PROPHYLAXIS
     Route: 049
     Dates: start: 20090713
  7. ZOFRAN [Concomitant]
     Route: 048
     Dates: start: 20100910, end: 20100912
  8. MAGNESIUM OXIDE [Concomitant]
     Indication: CONSTIPATION
     Route: 048
     Dates: end: 20100916
  9. FLURBIPROFEN [Concomitant]
     Indication: ABDOMINAL PAIN
     Route: 042
     Dates: start: 20090819, end: 20090819
  10. DOXORUBICIN HCL [Suspect]
     Route: 042
     Dates: start: 20100406, end: 20100406
  11. DOXORUBICIN HCL [Suspect]
     Route: 042
     Dates: start: 20100607, end: 20100607
  12. ZOFRAN [Concomitant]
     Indication: PROPHYLAXIS
     Route: 048
     Dates: start: 20090713, end: 20090715
  13. LIPITOR [Concomitant]
     Indication: HYPERLIPIDAEMIA
     Route: 048
     Dates: end: 20101015
  14. SCOPOLAMINE [Concomitant]
     Indication: ABDOMINAL PAIN
     Route: 042
     Dates: start: 20090818, end: 20090818
  15. PRIMPERAN TAB [Concomitant]
     Indication: ABDOMINAL PAIN
     Route: 042
     Dates: start: 20090818, end: 20090818
  16. DOXORUBICIN HCL [Suspect]
     Route: 042
     Dates: start: 20091112, end: 20091112
  17. DOXORUBICIN HCL [Suspect]
     Route: 042
     Dates: start: 20100302, end: 20100302
  18. FILGRASTIM [Suspect]
     Indication: NEUTROPHIL COUNT DECREASED
     Route: 050
     Dates: start: 20090717, end: 20090718
  19. DECADRON [Concomitant]
     Indication: RASH
     Route: 048
     Dates: start: 20090812, end: 20090814
  20. VERAPAMIL HCL [Concomitant]
     Indication: SUPRAVENTRICULAR TACHYCARDIA
     Route: 042
     Dates: start: 20090812, end: 20090812
  21. DOXORUBICIN HCL [Suspect]
     Route: 042
     Dates: start: 20091215, end: 20091215
  22. DOXORUBICIN HCL [Suspect]
     Route: 042
     Dates: start: 20100714, end: 20100714
  23. SODIUM HYALURONATE [Concomitant]
     Route: 065
     Dates: start: 20090826
  24. DOXORUBICIN HCL [Suspect]
     Indication: OVARIAN CANCER RECURRENT
     Route: 042
     Dates: start: 20090925, end: 20090925
  25. FILGRASTIM [Suspect]
     Route: 050
     Dates: start: 20090811, end: 20090811
  26. ZOFRAN [Concomitant]
     Route: 048
     Dates: start: 20090827, end: 20090827
  27. PROCTOSEDYL [Concomitant]
     Indication: HAEMORRHOIDS
     Route: 054
     Dates: start: 20100909, end: 20100911
  28. STADOL [Concomitant]
     Indication: ABDOMINAL PAIN
     Route: 042
     Dates: start: 20090818, end: 20090819
  29. DOXORUBICIN HCL [Suspect]
     Route: 042
     Dates: start: 20100506, end: 20100506
  30. DOXORUBICIN HCL [Suspect]
     Route: 042
     Dates: start: 20100910, end: 20100910
  31. DECADRON [Concomitant]
     Indication: PROPHYLAXIS
     Route: 042
     Dates: start: 20090713, end: 20090713
  32. PYDOXAL [Concomitant]
     Indication: PROPHYLAXIS
     Route: 048
     Dates: start: 20090713, end: 20101015
  33. MUCOSTA [Concomitant]
     Indication: PROPHYLAXIS
     Route: 048
     Dates: start: 20100302, end: 20101015

REACTIONS (2)
  - SUPRAVENTRICULAR TACHYCARDIA [None]
  - CONSTIPATION [None]
